FAERS Safety Report 5474870-2 (Version None)
Quarter: 2007Q4

REPORT INFORMATION
  Report Type: 
  Country: None (occurrence: None)
  Receive Date: 20071002
  Receipt Date: 20070920
  Transmission Date: 20080405
  Serious: Yes (Other)
  Sender: FDA-Public Use
  Company Number: SG-ROCHE-520299

PATIENT
  Age: 14 Year
  Sex: Male

DRUGS (4)
  1. TAMIFLU [Suspect]
     Indication: DRUG USE FOR UNKNOWN INDICATION
     Route: 048
     Dates: start: 20070507, end: 20070508
  2. FENFEDRIN [Concomitant]
     Dosage: STRENGTH REPORTED AS CHLORPHENAMINE (4 MG), PSEUDOEPHEDRINE (60 MG)
     Dates: start: 20070507, end: 20070509
  3. CLARINASE [Concomitant]
     Dosage: DOSAGE RECEIVED IN MORNING
     Dates: start: 20070507, end: 20070509
  4. PARACETAMOL [Concomitant]
     Dosage: DOSAGE RECEIVED: 2 EVERY 6 HOURS
     Dates: start: 20070507, end: 20070509

REACTIONS (1)
  - INCOHERENT [None]
